FAERS Safety Report 8781235 (Version 1)
Quarter: 2012Q4

REPORT INFORMATION
  Report Type: Report from Study
  Country: CA (occurrence: CA)
  Receive Date: 20120913
  Receipt Date: 20120913
  Transmission Date: 20130627
  Serious: Yes (Other)
  Sender: FDA-Public Use
  Company Number: CA-ROCHE-1123856

PATIENT
  Age: 72 Year
  Sex: Male
  Weight: 88.5 kg

DRUGS (6)
  1. ROACTEMRA [Suspect]
     Indication: RHEUMATOID ARTHRITIS
     Route: 042
     Dates: start: 20110802
  2. METHOTREXATE [Concomitant]
     Route: 065
  3. BISOPROLOL [Concomitant]
     Dosage: drug name: ^Novo-bisoprolol^
     Route: 065
  4. AMLODIPINE [Concomitant]
     Dosage: drug name: ^Apo-amlodipine^
     Route: 065
  5. ASAPHEN [Concomitant]
  6. FOLIC ACID [Concomitant]

REACTIONS (1)
  - Ligament sprain [Not Recovered/Not Resolved]
